APPROVED DRUG PRODUCT: EUCRISA
Active Ingredient: CRISABOROLE
Strength: 2%
Dosage Form/Route: OINTMENT;TOPICAL
Application: N207695 | Product #001
Applicant: ANACOR PHARMACEUTICALS INC
Approved: Dec 14, 2016 | RLD: Yes | RS: Yes | Type: RX

PATENTS:
Patent 8501712 | Expires: Feb 16, 2027
Patent 9682092 | Expires: Feb 16, 2027
Patent 8168614 | Expires: Jan 20, 2030
Patent 8039451 | Expires: Jun 29, 2029
Patent 8039451*PED | Expires: Dec 29, 2029
Patent 8168614*PED | Expires: Jul 20, 2030
Patent 8501712*PED | Expires: Aug 16, 2027
Patent 9682092*PED | Expires: Aug 16, 2027

EXCLUSIVITY:
Code: D-191 | Date: Apr 3, 2026